FAERS Safety Report 17571426 (Version 1)
Quarter: 2020Q1

REPORT INFORMATION
  Report Type: Spontaneous
  Country: US (occurrence: US)
  Receive Date: 20200321
  Receipt Date: 20200321
  Transmission Date: 20200409
  Serious: Yes (Hospitalization, Other)
  Sender: FDA-Public Use
  Company Number: None

PATIENT
  Age: 28 Year
  Sex: Female
  Weight: 56.7 kg

DRUGS (2)
  1. PARAGARD T 380A [Suspect]
     Active Substance: COPPER
     Dates: start: 20151115, end: 20200107
  2. DAILY VITAMIN [Concomitant]
     Active Substance: VITAMINS

REACTIONS (14)
  - Vaginal haemorrhage [None]
  - Somnolence [None]
  - Pregnancy test positive [None]
  - Blood potassium decreased [None]
  - Constipation [None]
  - Pain [None]
  - Emotional disorder [None]
  - Insomnia [None]
  - Tremor [None]
  - Headache [None]
  - Pain in extremity [None]
  - Abortion spontaneous [None]
  - Pregnancy with contraceptive device [None]
  - Abdominal discomfort [None]

NARRATIVE: CASE EVENT DATE: 20200107
